FAERS Safety Report 20042917 (Version 5)
Quarter: 2022Q3

REPORT INFORMATION
  Report Type: Spontaneous
  Country: JP (occurrence: JP)
  Receive Date: 20211108
  Receipt Date: 20220923
  Transmission Date: 20221027
  Serious: Yes (Death, Hospitalization)
  Sender: FDA-Public Use
  Company Number: JP-NOVARTISPH-NVSJ2021JP018268

PATIENT
  Age: 42 Year
  Sex: Female
  Weight: 42.7 kg

DRUGS (20)
  1. NEORAL [Suspect]
     Active Substance: CYCLOSPORINE
     Indication: Systemic lupus erythematosus
     Dosage: 25 MG, BID
     Route: 048
     Dates: start: 20020522, end: 20020530
  2. NEORAL [Suspect]
     Active Substance: CYCLOSPORINE
     Indication: Systemic lupus erythematosus
     Dosage: 50 MG, BID
     Route: 048
     Dates: start: 20020531, end: 20020606
  3. NEORAL [Suspect]
     Active Substance: CYCLOSPORINE
     Dosage: 25/50 MG
     Route: 048
     Dates: start: 20020607, end: 20020613
  4. NEORAL [Suspect]
     Active Substance: CYCLOSPORINE
     Dosage: 50 MG, BID
     Route: 048
     Dates: start: 20020614, end: 20020704
  5. NEORAL [Suspect]
     Active Substance: CYCLOSPORINE
     Dosage: 75/50 MG
     Route: 048
     Dates: start: 20020705, end: 20020711
  6. PREDONINE [Suspect]
     Active Substance: PREDNISOLONE
     Indication: Systemic lupus erythematosus
     Dosage: 30 MG
     Route: 048
     Dates: start: 1981
  7. PREDONINE [Suspect]
     Active Substance: PREDNISOLONE
     Indication: Systemic lupus erythematosus
     Dosage: 40 MG
     Route: 048
  8. PREDONINE [Suspect]
     Active Substance: PREDNISOLONE
     Dosage: 50 MG, QD
     Route: 048
     Dates: start: 20020522, end: 20020612
  9. PREDONINE [Suspect]
     Active Substance: PREDNISOLONE
     Dosage: 40 MG, QD
     Route: 048
     Dates: start: 20020613, end: 20020703
  10. PREDONINE [Suspect]
     Active Substance: PREDNISOLONE
     Dosage: 35 MG, QD
     Route: 048
     Dates: start: 20020704, end: 20020724
  11. PREDONINE [Suspect]
     Active Substance: PREDNISOLONE
     Dosage: 30 MG, QD
     Route: 048
     Dates: start: 20020725
  12. PREDONINE [Suspect]
     Active Substance: PREDNISOLONE
     Dosage: 25 MG
     Route: 048
     Dates: start: 20120725
  13. AZATHIOPRINE [Suspect]
     Active Substance: AZATHIOPRINE
     Indication: Systemic lupus erythematosus
     Dosage: UNK
     Route: 065
     Dates: end: 2001
  14. MIZORIBINE [Suspect]
     Active Substance: MIZORIBINE
     Indication: Systemic lupus erythematosus
     Dosage: UNK
     Route: 065
     Dates: start: 2001
  15. PROGRAF [Suspect]
     Active Substance: TACROLIMUS
     Indication: Systemic lupus erythematosus
     Dosage: UNK
     Route: 065
     Dates: end: 2012
  16. ITRACONAZOLE [Concomitant]
     Active Substance: ITRACONAZOLE
     Indication: Prophylaxis
     Dosage: 200 MG, QD
     Route: 048
     Dates: start: 20020525
  17. ZANTAC [Concomitant]
     Active Substance: RANITIDINE HYDROCHLORIDE
     Indication: Prophylaxis
     Dosage: 150 MG, BID
     Route: 048
  18. ECABET SODIUM [Concomitant]
     Active Substance: ECABET SODIUM
     Indication: Prophylaxis
     Dosage: 1.5 G, BID
     Route: 048
  19. HERBESSER [Concomitant]
     Active Substance: DILTIAZEM HYDROCHLORIDE
     Indication: Hypertension
     Dosage: 100 MG, QD
     Route: 048
  20. FUNGIZONE [Concomitant]
     Active Substance: AMPHOTERICIN B
     Indication: Prophylaxis
     Dosage: 1 ML, QID
     Route: 048
     Dates: start: 20020523

REACTIONS (13)
  - General physical health deterioration [Fatal]
  - Progressive multifocal leukoencephalopathy [Fatal]
  - Headache [Fatal]
  - Decreased appetite [Fatal]
  - Nausea [Fatal]
  - Fall [Fatal]
  - Somnolence [Fatal]
  - Disorientation [Fatal]
  - Memory impairment [Fatal]
  - Nephropathy toxic [Not Recovered/Not Resolved]
  - Pulmonary nocardiosis [Recovered/Resolved]
  - Herpes zoster [Recovered/Resolved]
  - Product use in unapproved indication [Unknown]

NARRATIVE: CASE EVENT DATE: 20020621
